FAERS Safety Report 7603955-7 (Version None)
Quarter: 2011Q3

REPORT INFORMATION
  Report Type: 
  Country: None (occurrence: None)
  Receive Date: 20110712
  Receipt Date: 20110701
  Transmission Date: 20111222
  Serious: Yes (Death, Other)
  Sender: FDA-Public Use
  Company Number: CN-ROCHE-786994

PATIENT
  Age: 57 Year
  Sex: Male

DRUGS (3)
  1. S-1 REGIMEN [Concomitant]
     Dates: start: 20110608, end: 20110618
  2. HERCEPTIN [Suspect]
     Route: 065
     Dates: start: 20110608, end: 20110612
  3. PACLITAXEL [Concomitant]
     Dates: start: 20110608, end: 20110618

REACTIONS (3)
  - IMPAIRED HEALING [None]
  - ARTERIAL INJURY [None]
  - HAEMORRHAGE [None]
